FAERS Safety Report 12240888 (Version 1)
Quarter: 2016Q2

REPORT INFORMATION
  Report Type: Report from Study
  Country: US (occurrence: US)
  Receive Date: 20160406
  Receipt Date: 20160406
  Transmission Date: 20160815
  Serious: Yes (Hospitalization)
  Sender: FDA-Public Use
  Company Number: US-GILEAD-2016-0200835

PATIENT
  Age: 69 Year
  Sex: Female
  Weight: 78 kg

DRUGS (18)
  1. DIABETA [Concomitant]
     Active Substance: GLYBURIDE
  2. AMBRISENTAN [Suspect]
     Active Substance: AMBRISENTAN
     Indication: PULMONARY HYPERTENSION
     Dosage: 5 MG, QD
     Route: 065
     Dates: start: 20160202
  3. ADCIRCA [Concomitant]
     Active Substance: TADALAFIL
     Indication: PULMONARY HYPERTENSION
     Dosage: UNK
     Route: 065
  4. ELIQUIS [Concomitant]
     Active Substance: APIXABAN
  5. HYDRODIURIL [Concomitant]
     Active Substance: HYDROCHLOROTHIAZIDE
  6. XALATAN [Concomitant]
     Active Substance: LATANOPROST
  7. GLUCOPHAGE [Concomitant]
     Active Substance: METFORMIN HYDROCHLORIDE
  8. DULERA [Concomitant]
     Active Substance: FORMOTEROL FUMARATE DIHYDRATE\MOMETASONE FUROATE
  9. MULTIVITAMINES WITH IRON [Concomitant]
  10. CALCIUM CARBONATE AND VITAMIN D [Concomitant]
  11. LASIX [Concomitant]
     Active Substance: FUROSEMIDE
  12. TOPROL XL [Concomitant]
     Active Substance: METOPROLOL SUCCINATE
  13. PROAIR HFA [Concomitant]
     Active Substance: ALBUTEROL SULFATE
  14. ZOCOR [Concomitant]
     Active Substance: SIMVASTATIN
  15. MICRO-K [Concomitant]
     Active Substance: POTASSIUM CHLORIDE
  16. TIMOLOL MALEATE. [Concomitant]
     Active Substance: TIMOLOL MALEATE
  17. DESYREL [Concomitant]
     Active Substance: TRAZODONE HYDROCHLORIDE
  18. BYETTA [Concomitant]
     Active Substance: EXENATIDE

REACTIONS (4)
  - Chills [Not Recovered/Not Resolved]
  - Dizziness [Recovered/Resolved]
  - Blood glucose fluctuation [Recovered/Resolved]
  - Unevaluable event [Recovered/Resolved]

NARRATIVE: CASE EVENT DATE: 20160316
